FAERS Safety Report 26204694 (Version 1)
Quarter: 2025Q4

REPORT INFORMATION
  Report Type: Spontaneous
  Country: EU (occurrence: EU)
  Receive Date: 20251227
  Receipt Date: 20251227
  Transmission Date: 20260117
  Serious: Yes (Other)
  Sender: ANI
  Company Number: None

PATIENT
  Age: 61 Year
  Sex: Female
  Weight: 90 kg

DRUGS (4)
  1. ANASTROZOLE [Suspect]
     Active Substance: ANASTROZOLE
     Indication: Breast cancer
     Route: 048
     Dates: start: 20250303, end: 20250527
  2. NEURONTIN [Concomitant]
     Active Substance: GABAPENTIN
     Indication: Back pain
     Dates: start: 20250327, end: 20251025
  3. ABEMACICLIB [Concomitant]
     Active Substance: ABEMACICLIB
     Indication: Targeted cancer therapy
     Route: 048
     Dates: start: 20250303, end: 20250526
  4. ANASTROZOLE [Suspect]
     Active Substance: ANASTROZOLE
     Indication: Breast cancer
     Route: 048
     Dates: start: 20250805

REACTIONS (5)
  - Cerebral venous sinus thrombosis [Unknown]
  - Hemiparesis [Unknown]
  - Gait disturbance [Unknown]
  - Confusional state [Unknown]
  - Headache [Unknown]

NARRATIVE: CASE EVENT DATE: 20250525
